FAERS Safety Report 19000131 (Version 1)
Quarter: 2021Q1

REPORT INFORMATION
  Report Type: Spontaneous
  Country: AU (occurrence: AU)
  Receive Date: 20210312
  Receipt Date: 20210312
  Transmission Date: 20210420
  Serious: Yes (Other)
  Sender: FDA-Public Use
  Company Number: AU-BAXTER-2021BAX002960

PATIENT
  Sex: Male

DRUGS (2)
  1. FRUSEMIDE?CLARIS [Suspect]
     Active Substance: FUROSEMIDE
     Indication: PRODUCT USED FOR UNKNOWN INDICATION
     Route: 065
  2. EXTRANEAL [Suspect]
     Active Substance: CALCIUM CHLORIDE\ICODEXTRIN\MAGNESIUM CHLORIDE\SODIUM CHLORIDE\SODIUM LACTATE
     Indication: PERITONEAL DIALYSIS
     Dosage: OVERNIGHT
     Route: 033
     Dates: start: 202006, end: 20210119

REACTIONS (2)
  - Blister [Recovering/Resolving]
  - Blood blister [Recovered/Resolved]

NARRATIVE: CASE EVENT DATE: 202101
